FAERS Safety Report 6280775-X (Version None)
Quarter: 2009Q3

REPORT INFORMATION
  Report Type: 
  Country: None (occurrence: None)
  Receive Date: 20090724
  Receipt Date: 20090128
  Transmission Date: 20100115
  Serious: No
  Sender: FDA-Public Use
  Company Number: A0765684A

PATIENT
  Age: 69 Year
  Sex: Female

DRUGS (5)
  1. AVANDIA [Suspect]
     Dosage: 2MG TWICE PER DAY
     Route: 048
  2. GLIMEPIRIDE [Concomitant]
  3. JANUVIA [Concomitant]
  4. INSULIN [Concomitant]
  5. DIOVAN [Concomitant]

REACTIONS (1)
  - WEIGHT INCREASED [None]
